FAERS Safety Report 4645869-0 (Version None)
Quarter: 2005Q2

REPORT INFORMATION
  Report Type: 
  Country: None (occurrence: None)
  Receive Date: 20050427
  Receipt Date: 20050302
  Transmission Date: 20051028
  Serious: No
  Sender: FDA-Public Use
  Company Number: US-BRISTOL-MYERS SQUIBB COMPANY-12884797

PATIENT
  Age: 68 Year
  Sex: Female
  Weight: 68 kg

DRUGS (2)
  1. CAPTOPRIL [Suspect]
     Indication: HYPERTENSION
     Dosage: PAR'S 25MG YRS AGO TO 7/11/04;MYLAN'S 25MG 7/12 TO 8/10/04;PAR 8/11/04;BRAND NAME 8/11/04;BMS.
     Route: 048
  2. UNKNOWN TO US [Concomitant]

REACTIONS (1)
  - PRURITUS [None]
